FAERS Safety Report 23893662 (Version 1)
Quarter: 2024Q2

REPORT INFORMATION
  Report Type: Spontaneous
  Country: US (occurrence: None)
  Receive Date: 20240524
  Receipt Date: 20240524
  Transmission Date: 20240716
  Serious: No
  Sender: FDA-Public Use
  Company Number: US-ROCHE-3425275

PATIENT
  Age: 77 Year
  Sex: Female
  Weight: 81.266 kg

DRUGS (7)
  1. ACTEMRA [Suspect]
     Active Substance: TOCILIZUMAB
     Indication: Steroid therapy
     Dosage: STRENGTH: 162MG/0.9M
     Route: 058
     Dates: start: 20230801
  2. ACTEMRA [Suspect]
     Active Substance: TOCILIZUMAB
  3. ACTEMRA [Suspect]
     Active Substance: TOCILIZUMAB
     Indication: Rheumatoid arthritis
  4. ACTEMRA [Suspect]
     Active Substance: TOCILIZUMAB
  5. ACTEMRA [Suspect]
     Active Substance: TOCILIZUMAB
     Indication: Osteoarthritis
  6. ACTEMRA [Suspect]
     Active Substance: TOCILIZUMAB
  7. PREDNISONE [Concomitant]
     Active Substance: PREDNISONE

REACTIONS (9)
  - Device issue [Unknown]
  - Device defective [Unknown]
  - Product dose omission issue [Unknown]
  - Drug delivery system malfunction [Unknown]
  - Needle issue [Unknown]
  - Product communication issue [Unknown]
  - Product preparation error [Unknown]
  - Product complaint [Unknown]
  - No adverse event [Unknown]

NARRATIVE: CASE EVENT DATE: 20230916
